FAERS Safety Report 11498216 (Version 1)
Quarter: 2015Q3

REPORT INFORMATION
  Report Type: Spontaneous
  Country: US (occurrence: US)
  Receive Date: 20150911
  Receipt Date: 20150911
  Transmission Date: 20151125
  Serious: No
  Sender: FDA-Public Use
  Company Number: US-PFIZER INC-2015296308

PATIENT
  Age: 61 Year
  Sex: Female
  Weight: 95 kg

DRUGS (6)
  1. ALAVERT ALLERGY [Suspect]
     Active Substance: LORATADINE
     Indication: PAIN
     Dosage: 10 MG, 1X/DAY
     Route: 048
     Dates: start: 20150901
  2. FLUOROMETHOLONE. [Suspect]
     Active Substance: FLUOROMETHOLONE
     Indication: CONJUNCTIVITIS
  3. FLUOROMETHOLONE. [Suspect]
     Active Substance: FLUOROMETHOLONE
     Indication: EYE SWELLING
  4. ALAVERT ALLERGY [Suspect]
     Active Substance: LORATADINE
     Indication: EYE SWELLING
  5. FLUOROMETHOLONE. [Suspect]
     Active Substance: FLUOROMETHOLONE
     Indication: PAIN
     Dosage: 1 DF, 3X/DAY
     Route: 047
     Dates: start: 20150901
  6. ALAVERT ALLERGY [Suspect]
     Active Substance: LORATADINE
     Indication: CONJUNCTIVITIS

REACTIONS (6)
  - Eye pruritus [Not Recovered/Not Resolved]
  - Swelling [Not Recovered/Not Resolved]
  - Swollen tongue [Not Recovered/Not Resolved]
  - Eye disorder [Unknown]
  - Eye swelling [Recovering/Resolving]
  - Drug effect incomplete [Not Recovered/Not Resolved]

NARRATIVE: CASE EVENT DATE: 20150901
